FAERS Safety Report 6286303-7 (Version None)
Quarter: 2009Q3

REPORT INFORMATION
  Report Type: 
  Country: None (occurrence: None)
  Receive Date: 20090716
  Receipt Date: 20080623
  Transmission Date: 20100115
  Serious: Yes (Other)
  Sender: FDA-Public Use
  Company Number: 2008BI015927

PATIENT
  Age: 60 Year
  Sex: Female
  Weight: 90.7194 kg

DRUGS (14)
  1. AVONEX [Suspect]
     Indication: MULTIPLE SCLEROSIS
     Dosage: 30 UG;QW;IM
     Route: 030
     Dates: start: 20020101
  2. LIPITOR [Concomitant]
  3. ASPIRIN [Concomitant]
  4. VITAMIN D [Concomitant]
  5. CALCIUM [Concomitant]
  6. MAGNESIUM [Concomitant]
  7. FISH OIL [Concomitant]
  8. SANCTURA [Concomitant]
  9. SPIRONOLACTONE [Concomitant]
  10. ZYRTEC [Concomitant]
  11. TOPAMAX [Concomitant]
  12. SYNTHROID [Concomitant]
  13. PROTONIX [Concomitant]
  14. PREV MEDS [Concomitant]

REACTIONS (7)
  - ARTHRITIS [None]
  - BREAST MASS [None]
  - CONVULSION [None]
  - DIABETES MELLITUS [None]
  - FIBROMYALGIA [None]
  - INFLUENZA LIKE ILLNESS [None]
  - TREMOR [None]
